FAERS Safety Report 6678745-2 (Version None)
Quarter: 2010Q2

REPORT INFORMATION
  Report Type: 
  Country: None (occurrence: None)
  Receive Date: 20100412
  Receipt Date: 20100412
  Transmission Date: 20101027
  Serious: Yes (Hospitalization)
  Sender: FDA-Public Use
  Company Number: None

PATIENT
  Age: 62 Year
  Sex: Female
  Weight: 102.7 kg

DRUGS (11)
  1. CYCLOPHOSPHAMIDE [Suspect]
     Indication: BREAST CANCER
     Dosage: 1296MG ONCE IV
     Route: 042
     Dates: start: 20090921
  2. CARBAMAZEPINE [Concomitant]
  3. VALSARTAN [Concomitant]
  4. VENLAFAXINE HCL [Concomitant]
  5. LEVETIRACETAM [Concomitant]
  6. ESOMEPRAZOLE [Concomitant]
  7. NYSTATIN [Concomitant]
  8. MIRTAZAPINE [Concomitant]
  9. TOPIRAMATE [Concomitant]
  10. MONTELUKAST SODIUM [Concomitant]
  11. FLUTICASONE NASAL SPRAY [Concomitant]

REACTIONS (4)
  - BLOOD PRESSURE INCREASED [None]
  - CYSTITIS HAEMORRHAGIC [None]
  - HEART RATE INCREASED [None]
  - LEUKOCYTOSIS [None]
